FAERS Safety Report 24220668 (Version 3)
Quarter: 2024Q3

REPORT INFORMATION
  Report Type: Report from Study
  Country: US (occurrence: US)
  Receive Date: 20240818
  Receipt Date: 20240926
  Transmission Date: 20241017
  Serious: Yes (Death, Hospitalization)
  Sender: DECIPHERA PHARMACEUTICALS
  Company Number: US-DECIPHERA PHARMACEUTICALS LLC-2024US000713

PATIENT
  Age: 45 Year
  Sex: Male

DRUGS (3)
  1. QINLOCK [Suspect]
     Active Substance: RIPRETINIB
     Indication: Gastrointestinal stromal tumour
     Dosage: 100 MILLIGRAM, QD
     Route: 048
     Dates: start: 20240718, end: 2024
  2. QINLOCK [Suspect]
     Active Substance: RIPRETINIB
     Dosage: 100 MILLIGRAM, QD
     Route: 048
     Dates: start: 2024, end: 20240831
  3. LYRICA [Concomitant]
     Active Substance: PREGABALIN
     Indication: Product used for unknown indication

REACTIONS (14)
  - Death [Fatal]
  - Haematemesis [Unknown]
  - Haemoptysis [Unknown]
  - Neoplasm progression [Unknown]
  - Cancer pain [Unknown]
  - Abdominal pain upper [Unknown]
  - Palpitations [Unknown]
  - Memory impairment [Unknown]
  - Scrotal swelling [Unknown]
  - Dysuria [Unknown]
  - Nausea [Unknown]
  - Dyspnoea [Unknown]
  - Underdose [Unknown]
  - Product dose omission issue [Unknown]

NARRATIVE: CASE EVENT DATE: 20240101
